FAERS Safety Report 25533238 (Version 1)
Quarter: 2025Q3

REPORT INFORMATION
  Report Type: Spontaneous
  Country: US (occurrence: US)
  Receive Date: 20250709
  Receipt Date: 20250709
  Transmission Date: 20251020
  Serious: Yes (Death, Other)
  Sender: BIOVITRUM
  Company Number: US-BIOVITRUM-2024-US-009679

PATIENT
  Age: 66 Year
  Sex: Male

DRUGS (1)
  1. VONJO [Suspect]
     Active Substance: PACRITINIB
     Indication: Myelofibrosis
     Route: 048
     Dates: end: 20250705

REACTIONS (3)
  - Product use issue [Unknown]
  - Insurance issue [Unknown]
  - Death [Fatal]

NARRATIVE: CASE EVENT DATE: 20250705
